FAERS Safety Report 4726500-2 (Version None)
Quarter: 2005Q3

REPORT INFORMATION
  Report Type: 
  Country: None (occurrence: None)
  Receive Date: 20050726
  Receipt Date: 20050711
  Transmission Date: 20060218
  Serious: Yes (Other)
  Sender: FDA-Public Use
  Company Number: 2005103683

PATIENT
  Age: 7 Year
  Sex: 0

DRUGS (1)
  1. ZITHROMAX [Suspect]
     Indication: INFECTION PROPHYLAXIS
     Dosage: 250 MG, 3 IN 1 WK, ORAL
     Route: 048

REACTIONS (1)
  - ELECTROCARDIOGRAM PQ INTERVAL PROLONGED [None]
